FAERS Safety Report 24951603 (Version 1)
Quarter: 2025Q1

REPORT INFORMATION
  Report Type: Spontaneous
  Country: US (occurrence: US)
  Receive Date: 20250210
  Receipt Date: 20250210
  Transmission Date: 20250409
  Serious: No
  Sender: INTRA-CELLULAR THERAPIES
  Company Number: US-INTRA-CELLULAR THERAPIES, INC.-2024ICT01593

PATIENT
  Age: 8 Decade
  Sex: Female

DRUGS (3)
  1. CAPLYTA [Suspect]
     Active Substance: LUMATEPERONE
     Dates: start: 2024, end: 20241007
  2. VRAYLAR [Concomitant]
     Active Substance: CARIPRAZINE
  3. VRAYLAR [Concomitant]
     Active Substance: CARIPRAZINE
     Dates: end: 20241007

REACTIONS (1)
  - Dyspnoea [Unknown]

NARRATIVE: CASE EVENT DATE: 20241001
